FAERS Safety Report 5727115-X (Version None)
Quarter: 2008Q2

REPORT INFORMATION
  Report Type: 
  Country: None (occurrence: None)
  Receive Date: 20080505
  Receipt Date: 20080404
  Transmission Date: 20081010
  Serious: No
  Sender: FDA-Public Use
  Company Number: US-BAYER-200819667NA

PATIENT
  Age: 5 Year
  Sex: Female
  Weight: 14 kg

DRUGS (18)
  1. CAMPATH [Suspect]
     Indication: BONE MARROW CONDITIONING REGIMEN
     Dosage: TOTAL DAILY DOSE: 3 MG
     Route: 042
     Dates: start: 20080402, end: 20080402
  2. CAMPATH [Suspect]
     Dosage: TOTAL DAILY DOSE: 10 MG
     Route: 042
     Dates: start: 20080404, end: 20080404
  3. CAMPATH [Suspect]
     Dosage: TOTAL DAILY DOSE: 10 MG
     Route: 042
     Dates: start: 20080403, end: 20080403
  4. TYLENOL [Concomitant]
     Indication: PREMEDICATION
     Dates: start: 20080402
  5. TYLENOL [Concomitant]
  6. BENADRYL [Concomitant]
     Indication: PREMEDICATION
     Route: 042
     Dates: start: 20080402
  7. BENADRYL [Concomitant]
     Route: 042
     Dates: start: 20080403
  8. HYDROCORTISONE [Concomitant]
     Indication: PREMEDICATION
     Route: 042
     Dates: start: 20080402
  9. HYDROCORTISONE [Concomitant]
     Dates: start: 20080403
  10. RANITIDINE [Concomitant]
     Dosage: TOTAL DAILY DOSE: 30 MG
     Dates: start: 20080403
  11. METHYLPREDNISOLONE [Concomitant]
     Dates: start: 20080403
  12. FRUITY CHEWS MVI [Concomitant]
  13. BIOTENE MOUTHWASH [Concomitant]
  14. SOURCE CF PEDIATRIC [Concomitant]
  15. CORTISPORIN EAR SUSPENSION [Concomitant]
     Route: 001
  16. LEVAQUIN [Concomitant]
     Dosage: TOTAL DAILY DOSE: 150 MG
  17. PREVACID [Concomitant]
     Dosage: TOTAL DAILY DOSE: 15 MG
  18. ACYCLOVIR [Concomitant]
     Dosage: TOTAL DAILY DOSE: 450 MG

REACTIONS (2)
  - CHILLS [None]
  - URTICARIA [None]
